FAERS Safety Report 5489010-3 (Version None)
Quarter: 2007Q4

REPORT INFORMATION
  Report Type: 
  Country: None (occurrence: None)
  Receive Date: 20071016
  Receipt Date: 20071005
  Transmission Date: 20080405
  Serious: Yes (Hospitalization)
  Sender: FDA-Public Use
  Company Number: 2007SP018413

PATIENT
  Age: 43 Year
  Sex: Male

DRUGS (2)
  1. PEG-INTRON [Suspect]
     Indication: HEPATITIS C
     Dosage: SC
     Route: 058
     Dates: start: 20070810
  2. REBETOL [Suspect]
     Indication: HEPATITIS C
     Dosage: PO
     Route: 048
     Dates: start: 20070810

REACTIONS (13)
  - ANGIOPATHY [None]
  - ASTHENIA [None]
  - BACK PAIN [None]
  - EMOTIONAL DISORDER [None]
  - GALLBLADDER DISORDER [None]
  - ILL-DEFINED DISORDER [None]
  - MALAISE [None]
  - MALNUTRITION [None]
  - REFUSAL OF TREATMENT BY PATIENT [None]
  - RETCHING [None]
  - SLEEP DISORDER [None]
  - THROMBOSIS [None]
  - VOMITING [None]
